FAERS Safety Report 16069161 (Version 1)
Quarter: 2019Q1

REPORT INFORMATION
  Report Type: Spontaneous
  Country: AT (occurrence: AT)
  Receive Date: 20190313
  Receipt Date: 20190313
  Transmission Date: 20190418
  Serious: Yes (Death)
  Sender: FDA-Public Use
  Company Number: AT-ALLERGAN-1909515US

PATIENT

DRUGS (3)
  1. DALBAVANCIN HCL UNK [Suspect]
     Active Substance: DALBAVANCIN HYDROCHLORIDE
     Dosage: 500 MG, Q WEEK
     Route: 042
  2. DALBAVANCIN HCL UNK [Suspect]
     Active Substance: DALBAVANCIN HYDROCHLORIDE
     Indication: ARTHRITIS
     Dosage: 1000 MG, SINGLE
     Route: 042
  3. CEFTAZIDIM [Concomitant]
     Active Substance: CEFTAZIDIME
     Indication: PRODUCT USED FOR UNKNOWN INDICATION
     Dosage: UNK
     Route: 065

REACTIONS (2)
  - Death [Fatal]
  - Off label use [Unknown]
